FAERS Safety Report 7812933-4 (Version None)
Quarter: 2011Q4

REPORT INFORMATION
  Report Type: 
  Country: None (occurrence: None)
  Receive Date: 20111011
  Receipt Date: 20110928
  Transmission Date: 20120403
  Serious: Yes (Hospitalization)
  Sender: FDA-Public Use
  Company Number: DSA_47753_2011

PATIENT
  Age: 79 Year
  Sex: Male

DRUGS (3)
  1. PENTOXIFYLLINE [Suspect]
     Indication: PERIPHERAL ARTERIAL OCCLUSIVE DISEASE
     Dosage: (400 MG QD)
  2. CLOPIDOGREL [Suspect]
     Indication: PERIPHERAL ARTERIAL OCCLUSIVE DISEASE
     Dosage: (75 MG QD)
  3. CANDESARTAN CILEXETIL [Concomitant]

REACTIONS (4)
  - PETECHIAE [None]
  - THROMBOCYTOPENIA [None]
  - BLOOD PRESSURE SYSTOLIC INCREASED [None]
  - PURPURA [None]
